FAERS Safety Report 5279528-0 (Version None)
Quarter: 2007Q1

REPORT INFORMATION
  Report Type: 
  Country: None (occurrence: None)
  Receive Date: 20070328
  Receipt Date: 20070316
  Transmission Date: 20070707
  Serious: Yes (Death, Hospitalization, Other)
  Sender: FDA-Public Use
  Company Number: JP-PFIZER INC-2007004196

PATIENT
  Age: 6 Year
  Sex: Female
  Weight: 20 kg

DRUGS (15)
  1. SOLU-MEDROL [Suspect]
     Indication: INTERSTITIAL LUNG DISEASE
     Route: 042
  2. CYCLOSPORINE [Suspect]
     Route: 042
  3. INOVAN [Concomitant]
     Route: 042
  4. NITROGLYCERIN [Concomitant]
     Route: 042
     Dates: start: 20070102
  5. CORETEC [Concomitant]
     Route: 042
     Dates: start: 20061213
  6. HANP [Concomitant]
     Route: 042
     Dates: start: 20061223
  7. FUTHAN [Concomitant]
     Route: 042
     Dates: start: 20061213
  8. FENTANYL CITRATE [Concomitant]
     Route: 042
     Dates: start: 20061213
  9. NEOPHYLLIN [Concomitant]
     Route: 042
     Dates: start: 20061213
  10. MIRACLID [Concomitant]
     Route: 042
     Dates: start: 20061213
  11. DIPRIVAN [Concomitant]
     Route: 042
     Dates: start: 20070105, end: 20070119
  12. FRAGMIN [Concomitant]
     Route: 042
     Dates: start: 20070105, end: 20070120
  13. SANDIMMUNE [Concomitant]
     Route: 042
     Dates: start: 20061214, end: 20070115
  14. CHLOROQUINE [Concomitant]
     Route: 048
     Dates: start: 20061228, end: 20070117
  15. GASTER [Concomitant]
     Route: 042
     Dates: start: 20061213, end: 20070120

REACTIONS (7)
  - ANAEMIA [None]
  - CONDITION AGGRAVATED [None]
  - HEPATIC FUNCTION ABNORMAL [None]
  - LOWER GASTROINTESTINAL HAEMORRHAGE [None]
  - MULTI-ORGAN FAILURE [None]
  - PNEUMONIA [None]
  - RESPIRATORY FAILURE [None]
